FAERS Safety Report 7738142-5 (Version None)
Quarter: 2011Q3

REPORT INFORMATION
  Report Type: 
  Country: None (occurrence: None)
  Receive Date: 20110908
  Receipt Date: 20110124
  Transmission Date: 20111222
  Serious: No
  Sender: FDA-Public Use
  Company Number: US-BAYER-2011-009440

PATIENT
  Sex: Female

DRUGS (1)
  1. MIRENA [Suspect]
     Indication: CONTRACEPTION
     Dosage: 20 ?G/D, UNK
     Route: 015
     Dates: start: 20100501

REACTIONS (6)
  - FATIGUE [None]
  - DEVICE DIFFICULT TO USE [None]
  - DEVICE DISLOCATION [None]
  - NAUSEA [None]
  - HYPOMENORRHOEA [None]
  - MEDICAL DEVICE PAIN [None]
